FAERS Safety Report 8594102-6 (Version None)
Quarter: 2012Q3

REPORT INFORMATION
  Report Type: 
  Country: None (occurrence: None)
  Receive Date: 20120814
  Receipt Date: 20120801
  Transmission Date: 20120928
  Serious: Yes (Death)
  Sender: FDA-Public Use
  Company Number: TW-BAXTER-2012BAX013235

PATIENT

DRUGS (3)
  1. DIANEAL PD-2 W/ DEXTROSE 2.5% [Suspect]
  2. EXTRANEAL [Suspect]
  3. DIANEAL PD-2 W/ DEXTROSE 1.5% [Suspect]

REACTIONS (1)
  - RESPIRATORY FAILURE [None]
